FAERS Safety Report 17275268 (Version 3)
Quarter: 2020Q2

REPORT INFORMATION
  Report Type: Spontaneous
  Country: FR (occurrence: FR)
  Receive Date: 20200116
  Receipt Date: 20200406
  Transmission Date: 20200713
  Serious: Yes (Hospitalization)
  Sender: FDA-Public Use
  Company Number: FR-SUN PHARMACEUTICAL INDUSTRIES LTD-2020RR-233266

PATIENT
  Sex: Male
  Weight: 2.97 kg

DRUGS (10)
  1. VENLAFAXINE [Suspect]
     Active Substance: VENLAFAXINE HYDROCHLORIDE
     Indication: FIBROMYALGIA
     Dosage: 37.5 MILLIGRAMS, DAILY
     Route: 064
     Dates: start: 20190330, end: 20191125
  2. HYDROXYZINE(CLORHYDRATE D^) [Suspect]
     Active Substance: HYDROXYZINE HYDROCHLORIDE
     Indication: ANXIETY
     Dosage: 25 MILLIGRAMS, DAILY
     Route: 064
     Dates: start: 20191120, end: 20191124
  3. HUMALOG MIX 25 100UI/ML [Concomitant]
     Indication: GESTATIONAL DIABETES
     Dosage: 14 INTERNATIONAL UNIT, DAILY
     Route: 064
     Dates: start: 20191017, end: 20191125
  4. UMULINE NPH KWIKPEN 100 UI/1 ML [Concomitant]
     Indication: GESTATIONAL DIABETES
     Dosage: 16 INTERNATIONAL UNIT, DAILY
     Route: 064
     Dates: start: 20191017, end: 20191125
  5. MEGAMAG 45 MG, GELULE [Concomitant]
     Indication: VITAMIN SUPPLEMENTATION
     Dosage: 6 DOSAGE FORMS, DAILY
     Route: 064
     Dates: start: 20190802, end: 20190823
  6. CHOLURSO 500 MG, COMPRIME PELICULE [Concomitant]
     Indication: CHOLESTASIS
     Dosage: 2 DOSAGE FORMS, DAILY
     Route: 064
     Dates: start: 20191119, end: 20191125
  7. ROPIVACAINE (CHLORHYDRATE DE) MONOHYDRATE [Concomitant]
     Active Substance: ROPIVACAINE HYDROCHLORIDE
     Indication: EPIDURAL ANAESTHESIA
     Dosage: UNK
     Route: 064
     Dates: start: 20191125, end: 20191125
  8. SUFENTANIL [Concomitant]
     Active Substance: SUFENTANIL
     Indication: EPIDURAL ANAESTHESIA
     Dosage: UNK
     Route: 064
     Dates: start: 20191125, end: 20191125
  9. PARACETAMOL [Concomitant]
     Active Substance: ACETAMINOPHEN
     Indication: PAIN
     Dosage: INCONNUE()
     Route: 064
     Dates: start: 201908
  10. ISOFUNDINE, SOLUTION POUR PERFUSION [Concomitant]
     Active Substance: CALCIUM CHLORIDE\MAGNESIUM CHLORIDE\MALIC ACID\POTASSIUM CHLORIDE\SODIUM ACETATE\SODIUM CHLORIDE
     Indication: PRODUCT USED FOR UNKNOWN INDICATION
     Dosage: 500 MILLILITERS, UNK
     Route: 064
     Dates: start: 20191125, end: 20191125

REACTIONS (3)
  - Clonus [Recovered/Resolved]
  - Neonatal respiratory distress [Recovered/Resolved]
  - Tremor [Recovered/Resolved]

NARRATIVE: CASE EVENT DATE: 20191125
